FAERS Safety Report 10271975 (Version 3)
Quarter: 2015Q1

REPORT INFORMATION
  Report Type: Report from Study
  Country: US (occurrence: US)
  Receive Date: 20140702
  Receipt Date: 20150214
  Transmission Date: 20150720
  Serious: Yes (Death, Other)
  Sender: FDA-Public Use
  Company Number: PHEH2014US012937

PATIENT
  Sex: Female

DRUGS (1)
  1. EXJADE [Suspect]
     Active Substance: DEFERASIROX
     Indication: THROMBOCYTOPENIA
     Dosage: 2000 MG, DAILY (4 TABLETS, DAILY)
     Route: 048

REACTIONS (3)
  - Chronic obstructive pulmonary disease [Fatal]
  - Concomitant disease progression [Unknown]
  - Respiratory disorder [Fatal]
